FAERS Safety Report 10953380 (Version 1)
Quarter: 2015Q1

REPORT INFORMATION
  Report Type: Spontaneous
  Country: BR (occurrence: BR)
  Receive Date: 20150325
  Receipt Date: 20150325
  Transmission Date: 20150721
  Serious: Yes (Hospitalization, Other)
  Sender: FDA-Public Use
  Company Number: BR-ASTRAZENECA-2015SE25404

PATIENT
  Age: 799 Month
  Sex: Female
  Weight: 67 kg

DRUGS (14)
  1. ASA [Concomitant]
     Active Substance: ASPIRIN
     Indication: INFARCTION
     Route: 048
     Dates: start: 201102
  2. ASA [Concomitant]
     Active Substance: ASPIRIN
     Indication: ANTICOAGULANT THERAPY
     Route: 048
     Dates: start: 201102
  3. SELOZOK [Suspect]
     Active Substance: METOPROLOL SUCCINATE
     Indication: INFARCTION
     Route: 048
     Dates: start: 201102
  4. METOPROLOL TARTRATE. [Suspect]
     Active Substance: METOPROLOL TARTRATE
     Dosage: DAILY
     Route: 048
  5. LOSARTAN [Suspect]
     Active Substance: LOSARTAN
     Indication: HYPERTENSION
     Route: 048
     Dates: start: 201102
  6. ASA [Concomitant]
     Active Substance: ASPIRIN
     Indication: ANTICOAGULANT THERAPY
     Route: 048
     Dates: start: 1999, end: 201102
  7. TORLOS [Concomitant]
     Indication: HYPERTENSION
     Route: 048
  8. ASA [Concomitant]
     Active Substance: ASPIRIN
     Indication: INFARCTION
     Route: 048
     Dates: start: 1999, end: 201102
  9. LOSARTAN [Suspect]
     Active Substance: LOSARTAN
     Indication: HYPERTENSION
     Route: 048
     Dates: start: 1999, end: 201102
  10. ATORVASTATIN [Concomitant]
     Active Substance: ATORVASTATIN
     Indication: BLOOD TRIGLYCERIDES INCREASED
     Route: 048
     Dates: start: 201102
  11. ATORVASTATIN [Concomitant]
     Active Substance: ATORVASTATIN
     Indication: BLOOD CHOLESTEROL INCREASED
     Route: 048
     Dates: start: 201102
  12. ATORVASTATIN [Concomitant]
     Active Substance: ATORVASTATIN
     Indication: BLOOD TRIGLYCERIDES INCREASED
     Route: 048
     Dates: start: 201102
  13. SELOZOK [Suspect]
     Active Substance: METOPROLOL SUCCINATE
     Indication: INFARCTION
     Route: 048
     Dates: start: 1999, end: 201102
  14. ATORVASTATIN [Concomitant]
     Active Substance: ATORVASTATIN
     Indication: BLOOD CHOLESTEROL INCREASED
     Route: 048
     Dates: start: 201102

REACTIONS (5)
  - Blood pressure fluctuation [Recovered/Resolved]
  - Arterial occlusive disease [Recovered/Resolved]
  - Wrong drug administered [Recovered/Resolved]
  - Drug dispensing error [Recovered/Resolved]
  - Vitamin D decreased [Not Recovered/Not Resolved]

NARRATIVE: CASE EVENT DATE: 201102
